FAERS Safety Report 9465656 (Version 2)
Quarter: 2013Q3

REPORT INFORMATION
  Report Type: Spontaneous
  Country: NL (occurrence: NL)
  Receive Date: 20130820
  Receipt Date: 20130906
  Transmission Date: 20140515
  Serious: Yes (Death)
  Sender: FDA-Public Use
  Company Number: PHHY2013NL089596

PATIENT
  Sex: Female
  Weight: 71 kg

DRUGS (1)
  1. VOTUBIA [Suspect]
     Indication: ANGIOMYOLIPOMA
     Dosage: 10 MG, QD
     Route: 048
     Dates: start: 20130201, end: 20130601

REACTIONS (1)
  - Streptococcal sepsis [Fatal]
